FAERS Safety Report 6538248-2 (Version None)
Quarter: 2010Q1

REPORT INFORMATION
  Report Type: 
  Country: None (occurrence: None)
  Receive Date: 20100114
  Receipt Date: 20100105
  Transmission Date: 20100710
  Serious: Yes (Death, Life-Threatening, Hospitalization)
  Sender: FDA-Public Use
  Company Number: BE-PFIZER INC-2010001854

PATIENT
  Age: 61 Year
  Sex: Male

DRUGS (7)
  1. SUNITINIB MALATE [Suspect]
     Dosage: 37.5 MG, 1X/DAY
     Route: 048
     Dates: start: 20091208, end: 20100103
  2. ZESTRIL [Concomitant]
     Indication: HYPERTENSION
     Dosage: UNK
  3. ASAFLOW [Concomitant]
     Dosage: UNK
  4. DILTIAZEM HCL [Concomitant]
     Indication: HYPERTENSION
     Dosage: UNK
  5. CRESTOR [Concomitant]
     Indication: DYSLIPIDAEMIA
     Dosage: UNK
  6. MS CONTIN [Concomitant]
     Dosage: UNK
  7. NEXIUM [Concomitant]
     Indication: PROPHYLAXIS
     Dosage: UNK

REACTIONS (3)
  - MYOCARDIAL INFARCTION [None]
  - RENAL FAILURE ACUTE [None]
  - SEPSIS [None]
